FAERS Safety Report 5878136-8 (Version None)
Quarter: 2008Q3

REPORT INFORMATION
  Report Type: 
  Country: None (occurrence: None)
  Receive Date: 20080911
  Receipt Date: 20080902
  Transmission Date: 20090109
  Serious: Yes (Hospitalization)
  Sender: FDA-Public Use
  Company Number: US-JNJFOC-20080500565

PATIENT
  Sex: Female

DRUGS (2)
  1. INFLIXIMAB [Suspect]
     Indication: DRUG USE FOR UNKNOWN INDICATION
     Route: 042
  2. 5-ASA [Concomitant]
     Indication: INFLAMMATORY BOWEL DISEASE
     Route: 054

REACTIONS (2)
  - ABDOMINAL PAIN [None]
  - FEMALE GENITAL TRACT FISTULA [None]
